FAERS Safety Report 6525418-2 (Version None)
Quarter: 2010Q1

REPORT INFORMATION
  Report Type: 
  Country: None (occurrence: None)
  Receive Date: 20100104
  Receipt Date: 20091221
  Transmission Date: 20100710
  Serious: Yes (Hospitalization, Other)
  Sender: FDA-Public Use
  Company Number: US-ELI_LILLY_AND_COMPANY-US200912005018

PATIENT
  Sex: Female

DRUGS (4)
  1. FORTEO [Suspect]
     Indication: OSTEOPOROSIS
     Dosage: 20 UG, DAILY (1/D)
  2. RISPERIDONE [Concomitant]
     Dosage: 0.5 MG, 3/D
  3. COPAXONE [Concomitant]
     Dosage: 20 MG, DAILY (1/D)
     Route: 058
  4. GALANTAMINE HYDROBROMIDE [Concomitant]
     Dosage: 16 MG, AT BEDTIME

REACTIONS (2)
  - HIP FRACTURE [None]
  - URINARY TRACT INFECTION [None]
